FAERS Safety Report 7715131 (Version 4)
Quarter: 2012Q4

REPORT INFORMATION
  Report Type: Report from Study
  Country: BR (occurrence: BR)
  Receive Date: 20101216
  Receipt Date: 20121008
  Transmission Date: 20130627
  Serious: Yes (Hospitalization, Other)
  Sender: FDA-Public Use
  Company Number: BR-PFIZER INC-2010118829

PATIENT
  Age: 57 Year
  Sex: Female
  Weight: 69 kg

DRUGS (16)
  1. CHAMPIX [Suspect]
     Indication: SMOKING CESSATION THERAPY
     Dosage: UNK, 2x/day
     Route: 048
     Dates: start: 20100808, end: 2010
  2. CHAMPIX [Suspect]
     Dosage: UNK
     Route: 048
     Dates: start: 2010, end: 2010
  3. CHAMPIX [Suspect]
     Dosage: 1 mg, 2x/day, every 12 hours
     Route: 048
     Dates: start: 201009, end: 2010
  4. CHAMPIX [Suspect]
     Dosage: UNK
     Route: 048
     Dates: start: 201011
  5. CHAMPIX [Suspect]
     Dosage: UNK
     Route: 048
     Dates: start: 20120614, end: 2012
  6. SERTRALINE [Concomitant]
     Indication: ANXIETY
     Dosage: UNK
     Dates: start: 201007
  7. PURAN T4 [Concomitant]
     Indication: THYROID DISORDER
     Dosage: 100 mg, 1x/day
     Dates: start: 2008
  8. PURAN T4 [Concomitant]
     Indication: HYPOTHYROIDISM
  9. SIMVASTATIN [Concomitant]
     Indication: BLOOD CHOLESTEROL INCREASED
     Dosage: UNK
  10. AMINOPHYLLINE [Concomitant]
     Indication: LUNG DISORDER
     Dosage: 100 mg, 4x/day
  11. AMINOPHYLLINE [Concomitant]
     Indication: ASTHMA
  12. OXYGEN [Concomitant]
     Indication: LUNG DISORDER
     Dosage: UNK
  13. ALENIA [Concomitant]
     Indication: LUNG DISORDER
     Dosage: UNK, 4x/day
     Dates: start: 2008
  14. ALENIA [Concomitant]
     Indication: ASTHMA
  15. SALBUTAMOL [Concomitant]
     Indication: LUNG DISORDER
     Dosage: UNK
  16. RIVOTRIL [Concomitant]
     Indication: INSOMNIA
     Dosage: 2 mg, UNK

REACTIONS (14)
  - Diabetes mellitus [Unknown]
  - Hypertension [Unknown]
  - Enteritis infectious [Recovered/Resolved]
  - Pneumonia [Unknown]
  - Diarrhoea [Recovered/Resolved]
  - Incorrect dose administered [Unknown]
  - Anxiety [Recovered/Resolved]
  - Expired drug administered [Unknown]
  - Weight increased [Recovered/Resolved]
  - Alopecia [Recovered/Resolved]
  - Dizziness [Not Recovered/Not Resolved]
  - Nausea [Not Recovered/Not Resolved]
  - Abdominal pain upper [Not Recovered/Not Resolved]
  - Blood cholesterol abnormal [Unknown]
